FAERS Safety Report 12442131 (Version 1)
Quarter: 2016Q2

REPORT INFORMATION
  Report Type: Spontaneous
  Country: US (occurrence: US)
  Receive Date: 20160607
  Receipt Date: 20160607
  Transmission Date: 20160815
  Serious: No
  Sender: FDA-Public Use
  Company Number: US-CELGENEUS-USA-2016060329

PATIENT
  Sex: Female

DRUGS (1)
  1. THALOMID [Suspect]
     Active Substance: THALIDOMIDE
     Indication: PLASMA CELL MYELOMA
     Dosage: 100 MILLIGRAM
     Route: 048
     Dates: start: 201601, end: 2016

REACTIONS (4)
  - Rash [Unknown]
  - Discomfort [Unknown]
  - Abdominal distension [Unknown]
  - Pain [Unknown]

NARRATIVE: CASE EVENT DATE: 2016
